FAERS Safety Report 6958449-9 (Version None)
Quarter: 2010Q3

REPORT INFORMATION
  Report Type: 
  Country: None (occurrence: None)
  Receive Date: 20100831
  Receipt Date: 20100826
  Transmission Date: 20110219
  Serious: Yes (Other)
  Sender: FDA-Public Use
  Company Number: JP-ROCHE-718774

PATIENT
  Sex: Female
  Weight: 40 kg

DRUGS (1)
  1. ACTEMRA [Suspect]
     Indication: RHEUMATOID ARTHRITIS
     Route: 041
     Dates: start: 20100414, end: 20100414

REACTIONS (2)
  - INFUSION RELATED REACTION [None]
  - NON-HODGKIN'S LYMPHOMA [None]
